FAERS Safety Report 7329841-8 (Version None)
Quarter: 2011Q1

REPORT INFORMATION
  Report Type: 
  Country: None (occurrence: None)
  Receive Date: 20110303
  Receipt Date: 20110223
  Transmission Date: 20110831
  Serious: Yes (Other)
  Sender: FDA-Public Use
  Company Number: DE-BAXTER-2011BH004733

PATIENT

DRUGS (2)
  1. SODIUM CHLORIDE 0.9% IN PLASTIC CONTAINER [Suspect]
     Indication: BLOOD DONOR
     Route: 042
     Dates: start: 20110207, end: 20110207
  2. ANTICOAGULANT SODIUM CITRATE SOLUTION [Suspect]
     Indication: BLOOD DONOR
     Route: 042
     Dates: start: 20110207, end: 20110207

REACTIONS (1)
  - ANAPHYLACTIC REACTION [None]
